FAERS Safety Report 9376367 (Version 2)
Quarter: 2013Q4

REPORT INFORMATION
  Report Type: Report from Study
  Country: US (occurrence: US)
  Receive Date: 20130701
  Receipt Date: 20131004
  Transmission Date: 20140711
  Serious: Yes (Death, Hospitalization, Other)
  Sender: FDA-Public Use
  Company Number: US-BRISTOL-MYERS SQUIBB COMPANY-18826578

PATIENT
  Age: 54 Year
  Sex: Female

DRUGS (2)
  1. NIVOLUMAB [Suspect]
     Indication: NON-SMALL CELL LUNG CANCER
     Route: 042
     Dates: start: 20130326, end: 20130416
  2. IPILIMUMAB [Suspect]
     Indication: NON-SMALL CELL LUNG CANCER
     Route: 042
     Dates: start: 20130326, end: 20130416

REACTIONS (3)
  - Impaired gastric emptying [Recovered/Resolved]
  - Acute respiratory failure [Fatal]
  - Colitis [Recovered/Resolved]
